FAERS Safety Report 7658345-8 (Version None)
Quarter: 2011Q3

REPORT INFORMATION
  Report Type: 
  Country: None (occurrence: None)
  Receive Date: 20110805
  Receipt Date: 20110722
  Transmission Date: 20111222
  Serious: Yes (Life-Threatening, Other)
  Sender: FDA-Public Use
  Company Number: DE-UCBSA-032331

PATIENT
  Sex: Female

DRUGS (6)
  1. METOPROLOL TARTRATE [Concomitant]
     Indication: TACHYARRHYTHMIA
     Route: 048
     Dates: start: 20110502, end: 20110504
  2. CLONT [Concomitant]
     Indication: PNEUMONIA
     Route: 042
     Dates: start: 20110502, end: 20110504
  3. LOSARTAN POTASSIUM [Concomitant]
     Indication: HYPERTENSION
     Route: 048
     Dates: start: 20110501
  4. ROCEPHIN [Concomitant]
     Indication: PNEUMONIA
     Route: 042
     Dates: start: 20110502, end: 20110504
  5. KEPPRA [Concomitant]
     Indication: STATUS EPILEPTICUS
     Route: 042
     Dates: start: 20110502
  6. VIMPAT [Suspect]
     Indication: STATUS EPILEPTICUS
     Route: 042
     Dates: start: 20110503, end: 20110503

REACTIONS (1)
  - ATRIOVENTRICULAR BLOCK COMPLETE [None]
